FAERS Safety Report 6885274-X (Version None)
Quarter: 2010Q3

REPORT INFORMATION
  Report Type: 
  Country: None (occurrence: None)
  Receive Date: 20100729
  Receipt Date: 20100729
  Transmission Date: 20110219
  Serious: Yes (Other)
  Sender: FDA-Public Use
  Company Number: None

PATIENT
  Age: 67 Year
  Sex: Female
  Weight: 86.1834 kg

DRUGS (1)
  1. RECLAST [Suspect]
     Indication: OSTEOPENIA
     Dosage: ANNUALLY INTRA
     Dates: start: 20100719, end: 20100719

REACTIONS (8)
  - ABASIA [None]
  - ABDOMINAL PAIN UPPER [None]
  - ARTHRALGIA [None]
  - DRUG INEFFECTIVE [None]
  - JOINT EFFUSION [None]
  - MUSCULAR WEAKNESS [None]
  - MYALGIA [None]
  - ORTHOSIS USER [None]
